APPROVED DRUG PRODUCT: ESTROGENIC SUBSTANCE
Active Ingredient: ESTRONE
Strength: 2MG/ML
Dosage Form/Route: INJECTABLE;INJECTION
Application: A083488 | Product #001
Applicant: WYETH AYERST LABORATORIES
Approved: Approved Prior to Jan 1, 1982 | RLD: No | RS: No | Type: DISCN